FAERS Safety Report 5892338-6 (Version None)
Quarter: 2008Q3

REPORT INFORMATION
  Report Type: 
  Country: None (occurrence: None)
  Receive Date: 20080919
  Receipt Date: 20080919
  Transmission Date: 20090109
  Serious: Yes (Death)
  Sender: FDA-Public Use
  Company Number: None

PATIENT
  Sex: Female

DRUGS (4)
  1. MORPHINE SULFATE [Suspect]
     Dosage: 60 MG 1 TAB @ BEDTIME 047
     Dates: start: 20080101
  2. MORPHINE SULFATE [Suspect]
     Dosage: 60 MG 1 TAB @ BEDTIME 047
     Dates: start: 20080201
  3. MORPHINE SULFATE [Suspect]
     Dosage: 30 MG 1 TAB EVERY MORNING 047
     Dates: start: 20080201
  4. MORPHINE SULFATE [Suspect]
     Dosage: 30 MG 1 TAB EVERY MORNING 047
     Dates: start: 20080301

REACTIONS (2)
  - DRUG TOXICITY [None]
  - PHARMACEUTICAL PRODUCT COMPLAINT [None]
